FAERS Safety Report 5208823-6 (Version None)
Quarter: 2007Q1

REPORT INFORMATION
  Report Type: 
  Country: None (occurrence: None)
  Receive Date: 20070116
  Receipt Date: 20070105
  Transmission Date: 20070707
  Serious: Yes (Hospitalization, Other)
  Sender: FDA-Public Use
  Company Number: US-ELI_LILLY_AND_COMPANY-US_000745356

PATIENT
  Age: 23 Year
  Sex: Female
  Weight: 68.182 kg

DRUGS (6)
  1. ILETIN [Suspect]
     Indication: DIABETES MELLITUS
  2. HUMULIN R [Suspect]
     Indication: DIABETES MELLITUS
     Dosage: 20 U, UNKNOWN
  3. HUMULIN R [Suspect]
     Dosage: UNK, UNKNOWN
  4. HUMULIN R [Suspect]
     Dosage: UNK, UNKNOWN
  5. HUMULIN R [Suspect]
     Dosage: UNK, UNKNOWN
     Route: 058
  6. INSULIN [Suspect]
     Indication: DIABETES MELLITUS
     Dosage: UNK, UNKNOWN
     Dates: start: 19600101

REACTIONS (10)
  - BLOOD GLUCOSE DECREASED [None]
  - BLOOD GLUCOSE INCREASED [None]
  - CLAVICLE FRACTURE [None]
  - DEPRESSED LEVEL OF CONSCIOUSNESS [None]
  - DRUG HYPERSENSITIVITY [None]
  - EYE SWELLING [None]
  - PALPITATIONS [None]
  - RASH GENERALISED [None]
  - ROAD TRAFFIC ACCIDENT [None]
  - SKIN LESION [None]
